FAERS Safety Report 10436480 (Version 1)
Quarter: 2014Q3

REPORT INFORMATION
  Report Type: Spontaneous
  Country: US (occurrence: US)
  Receive Date: 20140908
  Receipt Date: 20140908
  Transmission Date: 20150326
  Serious: Yes (Other)
  Sender: FDA-Public Use
  Company Number: US-BRISTOL-MYERS SQUIBB COMPANY-19486125

PATIENT
  Age: 24 Year
  Sex: Female
  Weight: 58.96 kg

DRUGS (1)
  1. ABILIFY [Suspect]
     Active Substance: ARIPIPRAZOLE
     Indication: BIPOLAR I DISORDER
     Dosage: STARTED 8YRS AGO

REACTIONS (2)
  - Convulsion [Unknown]
  - Hypersensitivity [Unknown]
